FAERS Safety Report 7206950-5 (Version None)
Quarter: 2011Q1

REPORT INFORMATION
  Report Type: 
  Country: None (occurrence: None)
  Receive Date: 20110103
  Receipt Date: 20101215
  Transmission Date: 20110831
  Serious: Yes (Congenital Anomaly)
  Sender: FDA-Public Use
  Company Number: A0902074A

PATIENT
  Sex: Female

DRUGS (3)
  1. XANAX [Concomitant]
  2. PAXIL [Suspect]
     Indication: ANXIETY
     Dates: start: 20041101
  3. PAROXETINE HCL [Suspect]
     Indication: ANXIETY

REACTIONS (3)
  - CONGENITAL CORONARY ARTERY MALFORMATION [None]
  - ATRIAL SEPTAL DEFECT [None]
  - DRUG EXPOSURE DURING PREGNANCY [None]
